FAERS Safety Report 9462402 (Version 1)
Quarter: 2013Q3

REPORT INFORMATION
  Report Type: Report from Study
  Country: US (occurrence: US)
  Receive Date: 20130816
  Receipt Date: 20130816
  Transmission Date: 20140515
  Serious: Yes (Other)
  Sender: FDA-Public Use
  Company Number: CHPA2013US012950

PATIENT
  Sex: Female

DRUGS (1)
  1. PREVACID 24HR 15MG [Suspect]
     Indication: ULCER
     Dosage: UNK, UNK
     Route: 065

REACTIONS (2)
  - Ulcer [Unknown]
  - Condition aggravated [Unknown]
